FAERS Safety Report 6122314-X (Version None)
Quarter: 2009Q1

REPORT INFORMATION
  Report Type: 
  Country: None (occurrence: None)
  Receive Date: 20090310
  Receipt Date: 20090227
  Transmission Date: 20090719
  Serious: Yes (Hospitalization, Other)
  Sender: FDA-Public Use
  Company Number: AECAN200900027

PATIENT
  Age: 26 Month
  Sex: Female

DRUGS (5)
  1. GAMUNEX [Suspect]
     Indication: KAWASAKI'S DISEASE
     Dosage: IV
     Route: 042
     Dates: start: 20090131, end: 20090203
  2. IMMUNE GLOBULIN INTRAVENOUS (HUMAN) [Suspect]
     Indication: KAWASAKI'S DISEASE
     Dosage: IV
     Route: 042
     Dates: start: 20090131, end: 20090203
  3. ASPIRIN [Suspect]
     Indication: KAWASAKI'S DISEASE
     Dosage: 80 MG; QD; PO
     Route: 048
     Dates: start: 20090131, end: 20090209
  4. TYLENOL (CAPLET) [Concomitant]
  5. IGIVNEX -TALECRIS (IMMUNE GLOBULIN IV (HUMAN), CAPRYLATE/CHROMATOGRAPP [Suspect]

REACTIONS (1)
  - SERUM SICKNESS [None]
